FAERS Safety Report 11261669 (Version 1)
Quarter: 2015Q3

REPORT INFORMATION
  Report Type: Spontaneous
  Country: CN (occurrence: CN)
  Receive Date: 20150710
  Receipt Date: 20150710
  Transmission Date: 20151125
  Serious: Yes (Hospitalization)
  Sender: FDA-Public Use
  Company Number: CN-PFIZER INC-2015229222

PATIENT
  Age: 32 Year
  Sex: Male
  Weight: 56 kg

DRUGS (4)
  1. SOLU-MEDROL [Suspect]
     Active Substance: METHYLPREDNISOLONE SODIUM SUCCINATE
     Indication: LUPUS NEPHRITIS
     Dosage: 300 MG, 1X/DAY
     Route: 041
     Dates: start: 20140724, end: 20140726
  2. HYDROXYCHLOROQUINE SULPHATE [Concomitant]
     Active Substance: HYDROXYCHLOROQUINE
     Dosage: UNK
  3. TACROLIMUS. [Concomitant]
     Active Substance: TACROLIMUS
     Indication: IMMUNOSUPPRESSION
     Dosage: 2 MG, 1X/DAY
     Route: 048
     Dates: start: 20140725, end: 20140728
  4. MYKOFENOLATMOFETIL [Concomitant]
     Dosage: UNK

REACTIONS (8)
  - Asthenia [Unknown]
  - Somnolence [Not Recovered/Not Resolved]
  - Chest discomfort [Recovered/Resolved]
  - Sodium retention [Recovering/Resolving]
  - Fatigue [Recovered/Resolved]
  - Fluid retention [Recovering/Resolving]
  - Dizziness [Unknown]
  - Bradyphrenia [Recovered/Resolved]

NARRATIVE: CASE EVENT DATE: 20140724
